FAERS Safety Report 5799167-2 (Version None)
Quarter: 2008Q3

REPORT INFORMATION
  Report Type: 
  Country: None (occurrence: None)
  Receive Date: 20080701
  Receipt Date: 20080624
  Transmission Date: 20090109
  Serious: No
  Sender: FDA-Public Use
  Company Number: US023940

PATIENT
  Sex: Male

DRUGS (3)
  1. FENTORA [Suspect]
     Indication: ARTHRITIS
     Dosage: 400 UG BUCCAL
     Route: 002
  2. FENTORA [Suspect]
     Indication: INTERVERTEBRAL DISC DEGENERATION
     Dosage: 400 UG BUCCAL
     Route: 002
  3. OPANA [Concomitant]

REACTIONS (1)
  - DRUG PRESCRIBING ERROR [None]
